FAERS Safety Report 11522099 (Version 1)
Quarter: 2015Q3

REPORT INFORMATION
  Report Type: Spontaneous
  Country: US (occurrence: US)
  Receive Date: 20150903
  Receipt Date: 20150903
  Transmission Date: 20151125
  Serious: No
  Sender: FDA-Public Use
  Company Number: US-ELI_LILLY_AND_COMPANY-US201004005623

PATIENT
  Age: 55 Year
  Sex: Female

DRUGS (4)
  1. APIDRA [Concomitant]
     Active Substance: INSULIN GLULISINE
     Indication: TYPE 1 DIABETES MELLITUS
     Dosage: 1.6 U, OTHER
     Route: 058
     Dates: start: 2005
  2. APIDRA [Concomitant]
     Active Substance: INSULIN GLULISINE
     Dosage: 4 U, OTHER
     Route: 058
     Dates: start: 2005
  3. HUMALOG [Suspect]
     Active Substance: INSULIN LISPRO
     Dosage: UNK, UNK
     Dates: end: 2005
  4. APIDRA [Concomitant]
     Active Substance: INSULIN GLULISINE
     Dosage: 1.4 U, EVERY 8 HRS
     Route: 058
     Dates: start: 2005

REACTIONS (4)
  - Blood glucose increased [Unknown]
  - Irritability [Unknown]
  - Infusion site vesicles [Unknown]
  - Malaise [Unknown]
